FAERS Safety Report 20990313 (Version 2)
Quarter: 2022Q2

REPORT INFORMATION
  Report Type: Spontaneous
  Country: AU (occurrence: AU)
  Receive Date: 20220622
  Receipt Date: 20220630
  Transmission Date: 20220721
  Serious: Yes (Other)
  Sender: FDA-Public Use
  Company Number: AU-BEH-2022146561

PATIENT
  Age: 65 Year
  Sex: Female

DRUGS (1)
  1. HUMAN IMMUNOGLOBULIN G [Suspect]
     Active Substance: HUMAN IMMUNOGLOBULIN G
     Indication: Waldenstrom^s macroglobulinaemia
     Dosage: UNK, QMT
     Route: 042

REACTIONS (5)
  - Dermatitis allergic [Recovered/Resolved]
  - Dyshidrotic eczema [Recovered/Resolved]
  - Eczema [Recovered/Resolved]
  - No adverse event [Unknown]
  - Off label use [Unknown]
